FAERS Safety Report 6881496-2 (Version None)
Quarter: 2010Q3

REPORT INFORMATION
  Report Type: 
  Country: None (occurrence: None)
  Receive Date: 20100729
  Receipt Date: 20100720
  Transmission Date: 20110219
  Serious: Yes (Hospitalization)
  Sender: FDA-Public Use
  Company Number: US-BIOGENIDEC-2010BI019492

PATIENT
  Age: 42 Year
  Sex: Male

DRUGS (1)
  1. TYSABRI [Suspect]
     Indication: MULTIPLE SCLEROSIS
     Route: 042
     Dates: start: 20100602

REACTIONS (7)
  - DIZZINESS [None]
  - HYPERSOMNIA [None]
  - HYPOPHAGIA [None]
  - LOSS OF CONTROL OF LEGS [None]
  - MULTIPLE SCLEROSIS RELAPSE [None]
  - SUICIDAL IDEATION [None]
  - ULCER [None]
